FAERS Safety Report 15496150 (Version 1)
Quarter: 2018Q4

REPORT INFORMATION
  Report Type: Spontaneous
  Country: KR (occurrence: KR)
  Receive Date: 20181012
  Receipt Date: 20181012
  Transmission Date: 20190205
  Serious: Yes (Death, Other)
  Sender: FDA-Public Use
  Company Number: KR-009507513-1810KOR004359

PATIENT
  Sex: Male

DRUGS (14)
  1. KEYTRUDA [Suspect]
     Active Substance: PEMBROLIZUMAB
     Indication: GASTRIC CANCER
     Dosage: 1 DF, ONCE
     Dates: start: 20180917, end: 20180917
  2. ALFOGRIN [Concomitant]
     Dosage: 2 DF, UNK
     Dates: start: 20180905
  3. STILNOX [Concomitant]
     Active Substance: ZOLPIDEM TARTRATE
     Dosage: 0.5 DF, UNK
     Route: 048
     Dates: start: 20180905
  4. NAXEN F [Concomitant]
     Dosage: 2 DF, UNK
     Route: 048
     Dates: start: 20180905
  5. ABSTRAL [Concomitant]
     Active Substance: FENTANYL CITRATE
     Dosage: 3 DF, UNK
     Route: 048
     Dates: start: 20180905
  6. HARNAL [Concomitant]
     Active Substance: TAMSULOSIN HYDROCHLORIDE
     Dosage: 1 DF, UNK
     Route: 048
     Dates: start: 20180905
  7. TARGIN [Concomitant]
     Active Substance: NALOXONE HYDROCHLORIDE\OXYCODONE HYDROCHLORIDE
     Dosage: 2 DF, UNK
     Route: 048
     Dates: start: 20180905
  8. BETMIGA [Concomitant]
     Active Substance: MIRABEGRON
     Dosage: 1 DF, UNK
     Route: 048
     Dates: start: 20180905
  9. SODIUM CHLORIDE. [Concomitant]
     Active Substance: SODIUM CHLORIDE
     Dosage: 50 ML, 2 BAG
  10. IRCODON [Concomitant]
     Active Substance: OXYCODONE HYDROCHLORIDE
     Dosage: 3 DF, UNK
     Route: 048
     Dates: start: 20180905
  11. MEGACE F [Concomitant]
     Dosage: 1 DF, UNK
     Dates: start: 20180905
  12. DIOVAN [Concomitant]
     Active Substance: VALSARTAN
     Dosage: 1 DF, UNK
     Route: 048
     Dates: start: 20180905
  13. NORVASC [Concomitant]
     Active Substance: AMLODIPINE BESYLATE
     Dosage: 1 DF, UNK
     Route: 048
     Dates: start: 20180905
  14. SODIUM CHLORIDE. [Concomitant]
     Active Substance: SODIUM CHLORIDE
     Dosage: 100 ML, 2 BAG

REACTIONS (3)
  - Product use in unapproved indication [Unknown]
  - Malignant neoplasm progression [Fatal]
  - Hydrocephalus [Fatal]

NARRATIVE: CASE EVENT DATE: 201809
